FAERS Safety Report 8622645-5 (Version None)
Quarter: 2012Q3

REPORT INFORMATION
  Report Type: 
  Country: None (occurrence: None)
  Receive Date: 20120813
  Receipt Date: 20120801
  Transmission Date: 20120928
  Serious: Yes (Life-Threatening)
  Sender: FDA-Public Use
  Company Number: DSA_58886_2012

PATIENT

DRUGS (2)
  1. ENFLURANE [Suspect]
     Indication: ANAESTHESIA
     Dosage: (DF)
  2. DILTIAZEM [Suspect]
     Indication: PRODUCT USED FOR UNKNOWN INDICATION
     Dosage: (DF)

REACTIONS (3)
  - SINUS BRADYCARDIA [None]
  - DRUG INTERACTION [None]
  - CARDIAC ARREST [None]
